FAERS Safety Report 5535142-0 (Version None)
Quarter: 2007Q4

REPORT INFORMATION
  Report Type: 
  Country: None (occurrence: None)
  Receive Date: 20071204
  Receipt Date: 20071129
  Transmission Date: 20080405
  Serious: Yes (Other)
  Sender: FDA-Public Use
  Company Number: 2007RL000485

PATIENT
  Age: 47 Year
  Sex: Female

DRUGS (1)
  1. DYNACIRC CR (ISRADIPINE CR) [Suspect]
     Indication: BLOOD PRESSURE
     Dosage: 5 MG; QD; PO
     Route: 048
     Dates: start: 20070906, end: 20071101

REACTIONS (6)
  - CONDITION AGGRAVATED [None]
  - DIZZINESS [None]
  - HYPOACUSIS [None]
  - PALPITATIONS [None]
  - PITUITARY TUMOUR BENIGN [None]
  - TINNITUS [None]
